FAERS Safety Report 7734005-X (Version None)
Quarter: 2011Q3

REPORT INFORMATION
  Report Type: 
  Country: None (occurrence: None)
  Receive Date: 20110907
  Receipt Date: 20110826
  Transmission Date: 20111222
  Serious: Yes (Hospitalization)
  Sender: FDA-Public Use
  Company Number: DE-ELI_LILLY_AND_COMPANY-DE201108007881

PATIENT
  Sex: Female

DRUGS (3)
  1. VOLTAREN                                /SCH/ [Concomitant]
     Dosage: UNK, UNKNOWN
     Route: 065
  2. CALCIUM CARBONATE [Concomitant]
     Dosage: UNK, UNKNOWN
     Route: 065
  3. FORTEO [Suspect]
     Indication: OSTEOPOROSIS
     Dosage: UNK, QD
     Route: 058
     Dates: start: 20110520

REACTIONS (4)
  - GENITAL INFECTION FUNGAL [None]
  - PLEURISY [None]
  - GASTROINTESTINAL DISORDER [None]
  - DECREASED APPETITE [None]
